FAERS Safety Report 17616535 (Version 1)
Quarter: 2020Q2

REPORT INFORMATION
  Report Type: Spontaneous
  Country: CA (occurrence: CA)
  Receive Date: 20200402
  Receipt Date: 20200402
  Transmission Date: 20200713
  Serious: Yes (Other)
  Sender: FDA-Public Use
  Company Number: CA-TEVA-2020-CA-1216979

PATIENT
  Age: 63 Year
  Sex: Female
  Weight: 91 kg

DRUGS (7)
  1. BACLOFEN. [Concomitant]
     Active Substance: BACLOFEN
  2. JARDIANCE [Concomitant]
     Active Substance: EMPAGLIFLOZIN
  3. AMLODIPINE BESILATE [Concomitant]
     Active Substance: AMLODIPINE BESYLATE
  4. ZOPICLONE [Concomitant]
     Active Substance: ZOPICLONE
  5. ATIVAN [Concomitant]
     Active Substance: LORAZEPAM
  6. BISOPROLOL [Concomitant]
     Active Substance: BISOPROLOL
  7. ATORVASTATIN CALCIUM. [Suspect]
     Active Substance: ATORVASTATIN CALCIUM
     Indication: DYSLIPIDAEMIA
     Dosage: 20 MILLIGRAM DAILY;
     Route: 048

REACTIONS (4)
  - Dysphagia [Unknown]
  - Throat irritation [Unknown]
  - Swollen tongue [Unknown]
  - Cough [Unknown]
